FAERS Safety Report 22618849 (Version 3)
Quarter: 2023Q2

REPORT INFORMATION
  Report Type: Spontaneous
  Country: US (occurrence: US)
  Receive Date: 20230620
  Receipt Date: 20230626
  Transmission Date: 20230721
  Serious: Yes (Hospitalization)
  Sender: FDA-Public Use
  Company Number: US-ORPHANEU-2023003533

PATIENT

DRUGS (11)
  1. CARBAGLU [Suspect]
     Active Substance: CARGLUMIC ACID
     Indication: Propionic acidaemia
     Dosage: 600 MILLIGRAM, BID (FRIST SHIPMENT DATE: 31-AUG-2022)
     Dates: start: 2022
  2. CARBAGLU [Suspect]
     Active Substance: CARGLUMIC ACID
     Dosage: 3 TABLETS (900 MG PER DAY)
     Dates: end: 202306
  3. CARBAGLU [Suspect]
     Active Substance: CARGLUMIC ACID
     Dosage: 5 TABLETS (2000 MG PER DAY)
     Dates: start: 202306
  4. OMEPRAZOLE [Concomitant]
     Active Substance: OMEPRAZOLE
     Indication: Product used for unknown indication
     Dosage: UNK
     Dates: start: 20220825
  5. ISOLEUCINE [Concomitant]
     Active Substance: ISOLEUCINE
     Indication: Product used for unknown indication
     Dosage: UNK
     Dates: start: 20220825
  6. VALINE [Concomitant]
     Active Substance: VALINE
     Indication: Product used for unknown indication
     Dosage: UNK
     Dates: start: 20220825
  7. VITAMIN D3 [Concomitant]
     Active Substance: CHOLECALCIFEROL
     Indication: Product used for unknown indication
     Dosage: UNK
     Dates: start: 20220825
  8. IRON [Concomitant]
     Active Substance: IRON
     Indication: Product used for unknown indication
     Dosage: UNK
     Dates: start: 20220825
  9. BIOTIN [Concomitant]
     Active Substance: BIOTIN
     Indication: Product used for unknown indication
     Dosage: UNK
     Dates: start: 20220825
  10. LEVOCARNITINE [Concomitant]
     Active Substance: LEVOCARNITINE
     Indication: Product used for unknown indication
     Dosage: UNK
     Dates: start: 20220825
  11. KEPPRA [Concomitant]
     Active Substance: LEVETIRACETAM
     Indication: Product used for unknown indication
     Dosage: UNK
     Dates: start: 20220825

REACTIONS (2)
  - Ammonia increased [Recovering/Resolving]
  - Vomiting [Recovered/Resolved]

NARRATIVE: CASE EVENT DATE: 20230513
